FAERS Safety Report 6676036-7 (Version None)
Quarter: 2010Q2

REPORT INFORMATION
  Report Type: 
  Country: None (occurrence: None)
  Receive Date: 20100412
  Receipt Date: 20100330
  Transmission Date: 20101027
  Serious: Yes (Other)
  Sender: FDA-Public Use
  Company Number: US-RB-006640-10

PATIENT

DRUGS (1)
  1. DELSYM [Suspect]
     Dosage: DRANK A BOTTLE OF THE PRODUCT
     Route: 048
     Dates: start: 20100330

REACTIONS (3)
  - HYPOAESTHESIA [None]
  - INTENTIONAL OVERDOSE [None]
  - MYDRIASIS [None]
